FAERS Safety Report 16936345 (Version 1)
Quarter: 2019Q4

REPORT INFORMATION
  Report Type: Spontaneous
  Country: GB (occurrence: GB)
  Receive Date: 20191018
  Receipt Date: 20191018
  Transmission Date: 20200122
  Serious: Yes (Other)
  Sender: FDA-Public Use
  Company Number: GB-MYLANLABS-2019M1097854

PATIENT
  Age: 74 Year
  Sex: Male
  Weight: 81.6 kg

DRUGS (6)
  1. XATRAL                             /00975301/ [Concomitant]
     Active Substance: ALFUZOSIN
     Dosage: 10 MILLIGRAM
  2. PARACETAMOL [Concomitant]
     Active Substance: ACETAMINOPHEN
     Dosage: 500 MILLIGRAM
  3. FINASTERIDE. [Concomitant]
     Active Substance: FINASTERIDE
     Dosage: 5 MILLIGRAM
  4. CANDESARTAN. [Concomitant]
     Active Substance: CANDESARTAN
     Dosage: 4 MILLIGRAM
  5. FLUOROURACIL. [Suspect]
     Active Substance: FLUOROURACIL
     Indication: HYPERKERATOSIS
     Dosage: RUB IN SCALP EACH NIGHT
     Route: 061
     Dates: start: 20190822
  6. NASONEX [Concomitant]
     Active Substance: MOMETASONE FUROATE
     Dosage: 50 MICROGRAM

REACTIONS (4)
  - Pain [Not Recovered/Not Resolved]
  - Dizziness [Not Recovered/Not Resolved]
  - Pruritus [Not Recovered/Not Resolved]
  - Sensitive skin [Not Recovered/Not Resolved]

NARRATIVE: CASE EVENT DATE: 20190824
